FAERS Safety Report 25619174 (Version 1)
Quarter: 2025Q3

REPORT INFORMATION
  Report Type: Spontaneous
  Country: EU (occurrence: EU)
  Receive Date: 20250729
  Receipt Date: 20250729
  Transmission Date: 20251020
  Serious: Yes (Other)
  Sender: BRISTOL-MYERS SQUIBB COMPANY
  Company Number: EU-JNJFOC-20250730833

PATIENT
  Age: 77 Year
  Sex: Female

DRUGS (3)
  1. LENALIDOMIDE [Suspect]
     Active Substance: LENALIDOMIDE
     Indication: Plasma cell myeloma
  2. TOLODODEKIN ALFA [Suspect]
     Active Substance: TOLODODEKIN ALFA
     Indication: Plasma cell myeloma
  3. DEXAMETHASONE [Suspect]
     Active Substance: DEXAMETHASONE
     Indication: Plasma cell myeloma

REACTIONS (12)
  - Neutropenia [Unknown]
  - Pneumonia [Unknown]
  - Thrombocytopenia [Unknown]
  - Gastric ulcer [Unknown]
  - Diabetes mellitus [Unknown]
  - Decreased immune responsiveness [Unknown]
  - Infusion related reaction [Unknown]
  - Abdominal pain [Unknown]
  - Hypertension [Unknown]
  - Affective disorder [Unknown]
  - Sleep disorder [Unknown]
  - Oedema peripheral [Unknown]
